FAERS Safety Report 15133485 (Version 6)
Quarter: 2019Q4

REPORT INFORMATION
  Report Type: Spontaneous
  Country: US (occurrence: US)
  Receive Date: 20180712
  Receipt Date: 20191031
  Transmission Date: 20200122
  Serious: Yes (Hospitalization)
  Sender: FDA-Public Use
  Company Number: US-PFIZER INC-2018279646

PATIENT
  Age: 68 Year
  Sex: Female
  Weight: 63 kg

DRUGS (2)
  1. XALKORI [Suspect]
     Active Substance: CRIZOTINIB
     Indication: NON-SMALL CELL LUNG CANCER
     Dosage: 250 MG, 2X/DAY
     Route: 048
     Dates: start: 201806
  2. XALKORI [Suspect]
     Active Substance: CRIZOTINIB
     Indication: LUNG NEOPLASM MALIGNANT
     Dosage: 200 MG, TWICE A DAY (FOR 30 DAYS)
     Route: 048
     Dates: start: 201808

REACTIONS (8)
  - Condition aggravated [Recovered/Resolved]
  - Fatigue [Recovering/Resolving]
  - Fluid retention [Not Recovered/Not Resolved]
  - Oedema [Not Recovered/Not Resolved]
  - Cardiac disorder [Recovered/Resolved]
  - Weight increased [Not Recovered/Not Resolved]
  - Asthenia [Recovering/Resolving]
  - Swelling [Not Recovered/Not Resolved]

NARRATIVE: CASE EVENT DATE: 201807
